FAERS Safety Report 8830212 (Version 1)
Quarter: 2012Q4

REPORT INFORMATION
  Report Type: 
  Country: ZA (occurrence: ZA)
  Receive Date: 20121008
  Receipt Date: 20121008
  Transmission Date: 20130627
  Serious: Yes (Other)
  Sender: FDA-Public Use
  Company Number: ZA-ASTRAZENECA-2012SE75492

PATIENT
  Age: 66 Year
  Sex: Female
  Weight: 70 kg

DRUGS (2)
  1. SYMBICORD TURBUHALER [Suspect]
     Indication: ASTHMA
     Dosage: ONE PUFF, TWO TIMES A DAY
     Route: 055
     Dates: start: 201009
  2. SYMBICORD TURBUHALER [Suspect]
     Indication: ASTHMA
     Dosage: TWO PUFFS, THREE TIMES A DAY
     Route: 055
     Dates: end: 201109

REACTIONS (3)
  - Laryngitis [Recovered/Resolved]
  - Tachycardia [Recovered/Resolved]
  - Muscle spasms [Recovered/Resolved]
